FAERS Safety Report 6005524-1 (Version None)
Quarter: 2008Q4

REPORT INFORMATION
  Report Type: 
  Country: None (occurrence: None)
  Receive Date: 20081216
  Receipt Date: 20081216
  Transmission Date: 20090506
  Serious: No
  Sender: FDA-Public Use
  Company Number: None

PATIENT
  Sex: Female
  Weight: 59.8748 kg

DRUGS (1)
  1. ACTONEL [Suspect]
     Indication: BONE DISORDER
     Dosage: 35 MG 1/WEEK PO
     Route: 048
     Dates: start: 20081009, end: 20081208

REACTIONS (3)
  - ENDODONTIC PROCEDURE [None]
  - IMPAIRED HEALING [None]
  - PROCEDURAL PAIN [None]
